FAERS Safety Report 16133605 (Version 2)
Quarter: 2019Q2

REPORT INFORMATION
  Report Type: Report from Study
  Country: IT (occurrence: IT)
  Receive Date: 20190329
  Receipt Date: 20190524
  Transmission Date: 20190711
  Serious: Yes (Hospitalization)
  Sender: FDA-Public Use
  Company Number: IT-ACCORD-115843

PATIENT
  Age: 73 Year
  Sex: Female
  Weight: 65 kg

DRUGS (9)
  1. TYVERB [Suspect]
     Active Substance: LAPATINIB
     Indication: BREAST CANCER METASTATIC
     Dosage: 250 MG FILM-COATED TABLETS
     Route: 048
     Dates: start: 20181203, end: 20181212
  2. CAPECITABINE ACCORD [Suspect]
     Active Substance: CAPECITABINE
     Indication: BREAST CANCER METASTATIC
     Dosage: 500 MG FILM-COATED TABLETS
     Route: 048
     Dates: start: 20181203, end: 20181212
  3. BISOPROLOL [Concomitant]
     Active Substance: BISOPROLOL
  4. LEVETIRACETAM. [Concomitant]
     Active Substance: LEVETIRACETAM
  5. SOLDESAM [Concomitant]
     Active Substance: DEXAMETHASONE
  6. LEXOTAN [Concomitant]
     Active Substance: BROMAZEPAM
  7. ANASTROZOLE. [Concomitant]
     Active Substance: ANASTROZOLE
  8. HYDROCHLOROTHIAZIDE/RAMIPRIL [Concomitant]
  9. ADALAT CRONO [Concomitant]
     Active Substance: NIFEDIPINE

REACTIONS (4)
  - Nausea [Recovered/Resolved]
  - Asthenia [Recovered/Resolved]
  - Rectal haemorrhage [Recovered/Resolved]
  - Renal impairment [Recovered/Resolved]

NARRATIVE: CASE EVENT DATE: 20181210
